FAERS Safety Report 20824921 (Version 1)
Quarter: 2022Q2

REPORT INFORMATION
  Report Type: Spontaneous
  Country: FR (occurrence: FR)
  Receive Date: 20220513
  Receipt Date: 20220513
  Transmission Date: 20220721
  Serious: Yes (Hospitalization, Other)
  Sender: FDA-Public Use
  Company Number: None

PATIENT

DRUGS (20)
  1. ORGARAN [Suspect]
     Active Substance: DANAPAROID SODIUM
     Indication: Autoimmune heparin-induced thrombocytopenia
     Dosage: 3000 UI/J LE 18/04 PUIS 1500 UI/J DU 19 AU 20/04
     Route: 041
     Dates: start: 20220418, end: 20220420
  2. CLAIRYG [Suspect]
     Active Substance: HUMAN IMMUNOGLOBULIN G
     Indication: Autoimmune heparin-induced thrombocytopenia
     Dosage: 30 G (SOLUTION POUR PERFUSION)
     Route: 041
     Dates: start: 20220418, end: 20220418
  3. BROMAZEPAM [Concomitant]
     Active Substance: BROMAZEPAM
     Indication: Major depression
     Dosage: 1.5 MG, QD (BROMAZEPAM ARROW COMPRIME)
     Route: 048
  4. LANSOPRAZOLE [Concomitant]
     Active Substance: LANSOPRAZOLE
     Indication: Gastrooesophageal reflux disease
     Dosage: 30 MG, QD (LANSOPRAZOLE MYLAN 30 MG, (COMPRIME ORODISPERSIBLE)
     Route: 048
  5. PREDNISONE [Concomitant]
     Active Substance: PREDNISONE
     Indication: Autoimmune heparin-induced thrombocytopenia
     Dosage: 5 MG, QD (COMPRIME)
     Route: 048
  6. DYMISTA [Concomitant]
     Active Substance: AZELASTINE HYDROCHLORIDE\FLUTICASONE PROPIONATE
     Indication: Product used for unknown indication
     Dosage: 2 DOSAGE FORM, QD (137 MICROGRAMMES/50 MICROGRAMMES, SUSPENSION POUR PULVERISATION NASALE)
     Route: 055
     Dates: start: 20220417, end: 20220423
  7. SKENAN [Concomitant]
     Active Substance: MORPHINE SULFATE
     Indication: Pain
     Dosage: 2 DOSAGE FORM, QD (30 MG, MICROGRANULES A LIBERATION PROLONGEE EN GELULE)
     Route: 048
  8. LAMOTRIGINE [Concomitant]
     Active Substance: LAMOTRIGINE
     Indication: Partial seizures
     Dosage: 125 MG, QD
     Route: 048
  9. Transipeg [Concomitant]
     Indication: Constipation
     Dosage: UNK (5,9 G, POUDRE POUR SOLUTION BUVABLE EN SACHET)
     Route: 048
  10. ALPRAZOLAM [Concomitant]
     Active Substance: ALPRAZOLAM
     Indication: Major depression
     Dosage: 0.25 MG, COMPRIME SECABLE)
     Route: 048
     Dates: start: 20220417, end: 20220423
  11. NITROGLYCERIN [Concomitant]
     Active Substance: NITROGLYCERIN
     Indication: Acute coronary syndrome
     Dosage: 10 MG/24 HEURES, DISPOSITIF TRANSDERMIQUE
     Route: 062
  12. PAROXETINE [Concomitant]
     Active Substance: PAROXETINE
     Indication: Major depression
     Dosage: 40 MG, QD (COMPRIME PELLICULE SECABLE)
     Route: 048
  13. LEVOTHYROXINE [Concomitant]
     Active Substance: LEVOTHYROXINE
     Indication: Thyroidectomy
     Dosage: 75 ?G, QD (COMPRIME SECABLE)
     Route: 048
  14. KARDEGIC [Concomitant]
     Active Substance: ASPIRIN DL-LYSINE
     Indication: Cardiovascular event prophylaxis
     Dosage: 75 MG, POUDRE POUR SOLUTION BUVABLE EN SACHET-DOSE
     Route: 048
  15. DOLIPRANE [Concomitant]
     Active Substance: ACETAMINOPHEN
     Indication: Pain
     Dosage: 500 MG, GELULE
     Route: 048
     Dates: end: 20220420
  16. LIORESAL [Concomitant]
     Active Substance: BACLOFEN
     Indication: Muscle spasticity
     Dosage: 60 MG, QD (COMPRIME SECABLE)
     Route: 048
  17. FERROUS FUMARATE [Concomitant]
     Active Substance: FERROUS FUMARATE
     Indication: Anaemia
     Dosage: 1 DOSAGE FORM, QOD (COMPRIME PELLICULE)
     Route: 048
  18. MORPHINE SULFATE [Concomitant]
     Active Substance: MORPHINE SULFATE
     Indication: Pain
     Dosage: 1 DOSAGE FORM, 1 DOSE 6 HOURS (GELULE)
     Route: 048
  19. ZOPICLONE [Concomitant]
     Active Substance: ZOPICLONE
     Indication: Insomnia
     Dosage: 7.5 MG, QD (COMPRIME PELLICULE)
     Route: 048
  20. POTASSIUM CHLORIDE [Concomitant]
     Active Substance: POTASSIUM CHLORIDE
     Indication: Mineral supplementation
     Dosage: 1 DOSAGE FORM, QD (GELULE)
     Route: 048

REACTIONS (2)
  - Lymphopenia [Recovering/Resolving]
  - Neutropenia [Recovering/Resolving]

NARRATIVE: CASE EVENT DATE: 20220420
